FAERS Safety Report 8130399-4 (Version None)
Quarter: 2012Q1

REPORT INFORMATION
  Report Type: 
  Country: None (occurrence: None)
  Receive Date: 20120210
  Receipt Date: 20120208
  Transmission Date: 20120608
  Serious: Yes (Death, Hospitalization)
  Sender: FDA-Public Use
  Company Number: PHHY2012DE010050

PATIENT
  Sex: Female

DRUGS (1)
  1. AFINITOR [Suspect]
     Indication: METASTATIC RENAL CELL CARCINOMA
     Dosage: 10 MG, PER DAY
     Route: 048
     Dates: start: 20111020, end: 20111216

REACTIONS (5)
  - RENAL FAILURE ACUTE [None]
  - BLOOD CREATININE INCREASED [None]
  - GENERAL PHYSICAL HEALTH DETERIORATION [None]
  - DEHYDRATION [None]
  - INFLUENZA [None]
